FAERS Safety Report 16955694 (Version 1)
Quarter: 2019Q4

REPORT INFORMATION
  Report Type: Spontaneous
  Country: US (occurrence: US)
  Receive Date: 20191024
  Receipt Date: 20191024
  Transmission Date: 20200122
  Serious: No
  Sender: FDA-Public Use
  Company Number: US-PFIZER INC-2019459363

PATIENT
  Age: 66 Year
  Sex: Female
  Weight: 63.96 kg

DRUGS (2)
  1. DOXEPIN HCL [Suspect]
     Active Substance: DOXEPIN HYDROCHLORIDE
     Indication: HYPERSENSITIVITY
     Dosage: 50 MG, AS NEEDED (50MG AT BEDTIME AS NEEDED)
  2. DOXEPIN HCL [Suspect]
     Active Substance: DOXEPIN HYDROCHLORIDE
     Indication: SLEEP DISORDER

REACTIONS (1)
  - Drug ineffective [Unknown]
